FAERS Safety Report 20703914 (Version 2)
Quarter: 2022Q2

REPORT INFORMATION
  Report Type: Spontaneous
  Country: MX (occurrence: MX)
  Receive Date: 20220413
  Receipt Date: 20220428
  Transmission Date: 20220720
  Serious: Yes (Other)
  Sender: FDA-Public Use
  Company Number: MX-BAYER-2022P000527

PATIENT
  Age: 51 Year
  Sex: Female

DRUGS (5)
  1. EYLEA [Suspect]
     Active Substance: AFLIBERCEPT
     Indication: Product used for unknown indication
     Dosage: UNK (FORMULATION: SOLUTION FOR INJECTION)
     Route: 031
  2. EYLEA [Suspect]
     Active Substance: AFLIBERCEPT
     Dosage: 1 DOSE (FORMULATION: SOLUTION FOR INJECTION)
     Route: 031
     Dates: start: 20210420
  3. EYLEA [Suspect]
     Active Substance: AFLIBERCEPT
     Dosage: 2 DOSE (FORMULATION: SOLUTION FOR INJECTION)
     Route: 031
     Dates: start: 20210520
  4. EYLEA [Suspect]
     Active Substance: AFLIBERCEPT
     Dosage: 3 DOSE (FORMULATION: SOLUTION FOR INJECTION)
     Route: 031
     Dates: start: 20210622
  5. EYLEA [Suspect]
     Active Substance: AFLIBERCEPT
     Dosage: 4 DOSE (FORMULATION: SOLUTION FOR INJECTION)
     Route: 031
     Dates: start: 20210922

REACTIONS (2)
  - Suicidal ideation [Unknown]
  - Depression [Unknown]
